FAERS Safety Report 7629391-5 (Version None)
Quarter: 2011Q3

REPORT INFORMATION
  Report Type: 
  Country: None (occurrence: None)
  Receive Date: 20110722
  Receipt Date: 20110712
  Transmission Date: 20111222
  Serious: Yes (Hospitalization)
  Sender: FDA-Public Use
  Company Number: CA-JNJFOC-20110706388

PATIENT
  Sex: Male
  Weight: 82 kg

DRUGS (2)
  1. REMICADE [Suspect]
     Indication: CROHN'S DISEASE
     Dosage: ILLEGIBLE MONTH FOR START DATE
     Route: 042
     Dates: start: 20110101
  2. ASACOL [Concomitant]

REACTIONS (1)
  - NEPHROLITHIASIS [None]
